FAERS Safety Report 7417413-6 (Version None)
Quarter: 2011Q2

REPORT INFORMATION
  Report Type: 
  Country: None (occurrence: None)
  Receive Date: 20110408
  Receipt Date: 20110325
  Transmission Date: 20111010
  Serious: Yes (Other)
  Sender: FDA-Public Use
  Company Number: MC201100134

PATIENT

DRUGS (1)
  1. ANGIOMAX [Suspect]
     Indication: PERCUTANEOUS CORONARY INTERVENTION
     Dosage: BOLUS, INTRAVENOUS ; INFUSION, INTRAVENOUS
     Route: 042

REACTIONS (1)
  - CARDIAC PROCEDURE COMPLICATION [None]
